FAERS Safety Report 25256834 (Version 1)
Quarter: 2025Q2

REPORT INFORMATION
  Report Type: Spontaneous
  Country: CA (occurrence: CA)
  Receive Date: 20250430
  Receipt Date: 20250430
  Transmission Date: 20250717
  Serious: Yes (Other)
  Sender: FRESENIUS KABI
  Company Number: CA-FreseniusKabi-FK202506052

PATIENT
  Age: 67 Year
  Sex: Female

DRUGS (5)
  1. DIPYRIDAMOLE [Suspect]
     Active Substance: DIPYRIDAMOLE
     Indication: Platelet count decreased
  2. ALBUREX [Suspect]
     Active Substance: ALBUMIN HUMAN
     Indication: Blood albumin decreased
  3. CIPRO [Concomitant]
     Active Substance: CIPROFLOXACIN HYDROCHLORIDE
     Indication: Antibiotic therapy
  4. ERTAPENEM [Concomitant]
     Active Substance: ERTAPENEM
     Indication: Antibiotic therapy
     Route: 042
  5. RIFAXIMIN [Concomitant]
     Active Substance: RIFAXIMIN
     Indication: Antibiotic therapy

REACTIONS (2)
  - Pyrexia [Unknown]
  - Staphylococcal infection [Unknown]
